FAERS Safety Report 5692872-8 (Version None)
Quarter: 2008Q2

REPORT INFORMATION
  Report Type: 
  Country: None (occurrence: None)
  Receive Date: 20080401
  Receipt Date: 20080319
  Transmission Date: 20081010
  Serious: Yes (Life-Threatening)
  Sender: FDA-Public Use
  Company Number: 08H-132-0314068-00

PATIENT
  Age: 29 Year
  Sex: Male
  Weight: 31.7518 kg

DRUGS (6)
  1. PHENYTOIN SODIUM [Suspect]
     Indication: CONVULSION
     Dosage: 1 GM, 1 IN 1 DOSE, IV PUSH
     Route: 042
     Dates: start: 20080124, end: 20080124
  2. PHENYTOIN SODIUM [Suspect]
     Indication: PROPHYLAXIS
     Dosage: 1 GM, 1 IN 1 DOSE, IV PUSH
     Route: 042
     Dates: start: 20080124, end: 20080124
  3. FENTANYL [Concomitant]
  4. PAVULON [Concomitant]
  5. PROPOFOL [Concomitant]
  6. REMIFENTANYL (REMIFENTANIL) [Concomitant]

REACTIONS (1)
  - CARDIAC ARREST [None]
